FAERS Safety Report 16735850 (Version 7)
Quarter: 2023Q2

REPORT INFORMATION
  Report Type: Spontaneous
  Country: US (occurrence: US)
  Receive Date: 20190823
  Receipt Date: 20230630
  Transmission Date: 20230722
  Serious: No
  Sender: FDA-Public Use
  Company Number: US-PFIZER INC-2019361686

PATIENT
  Age: 70 Year
  Sex: Male
  Weight: 168 kg

DRUGS (13)
  1. XELJANZ XR [Suspect]
     Active Substance: TOFACITINIB CITRATE
     Indication: Arthritis
     Dosage: 11 MG, 1X/DAY
     Dates: start: 2018
  2. XELJANZ XR [Suspect]
     Active Substance: TOFACITINIB CITRATE
     Indication: Arthralgia
  3. METHOTREXATE [Concomitant]
     Active Substance: METHOTREXATE
     Dosage: UNK, WEEKLY
  4. AMITOR [AMITRIPTYLINE HYDROCHLORIDE] [Concomitant]
     Dosage: 25 MG, 3X/DAY
     Dates: start: 2013
  5. CETIRIZINE HYDROCHLORIDE [Concomitant]
     Active Substance: CETIRIZINE HYDROCHLORIDE
     Dosage: 10 MG, 1X/DAY
  6. DOCUSATE SODIUM AND DANTRON [Concomitant]
     Dosage: 100 MG, 4X/DAY
     Dates: start: 2013
  7. FOLIC ACID [Concomitant]
     Active Substance: FOLIC ACID
     Dosage: 800 UG, 1X/DAY
  8. GABAPENTIN [Concomitant]
     Active Substance: GABAPENTIN
     Dosage: 3000 MG, DAILY (600MG TABLET 5 PER DAY)
  9. HIDROCODONA/ACETAMINOFEN MALLINCKRODT [Concomitant]
     Dosage: UNK (10-325 MG TABLET 6 PER DAY)
     Dates: start: 2019
  10. LISINOPRIL+HIDROCLOROTIAZIDA [Concomitant]
     Dosage: UNK, 2X/DAY (20-125 TABLET 2 PER DAY)
  11. MAGNESIUM [Concomitant]
     Active Substance: MAGNESIUM
     Dosage: 250 MG, 1X/DAY
  12. MELATONIN [Concomitant]
     Active Substance: MELATONIN
     Dosage: 5 MG, 3X/DAY
  13. DOCUSATE SODIUM\SENNOSIDES [Concomitant]
     Active Substance: DOCUSATE SODIUM\SENNOSIDES
     Dosage: UNK UNK, 4X/DAY(8.6-50 MG TABLET 4 PER DAY)

REACTIONS (4)
  - Memory impairment [Recovering/Resolving]
  - Back disorder [Unknown]
  - Psoriasis [Not Recovered/Not Resolved]
  - Faeces hard [Unknown]
